FAERS Safety Report 6075045-9 (Version None)
Quarter: 2009Q1

REPORT INFORMATION
  Report Type: 
  Country: None (occurrence: None)
  Receive Date: 20090212
  Receipt Date: 20090131
  Transmission Date: 20090719
  Serious: Yes (Other)
  Sender: FDA-Public Use
  Company Number: DE-BAYER-200913061GPV

PATIENT
  Age: 66 Year
  Sex: Male

DRUGS (2)
  1. FLUDARABINE PHOSPHATE [Suspect]
     Indication: CHRONIC LYMPHOCYTIC LEUKAEMIA
     Route: 065
     Dates: start: 20040101
  2. GEMCITABINE [Suspect]
     Indication: ADENOCARCINOMA PANCREAS
     Route: 065
     Dates: start: 20060101

REACTIONS (4)
  - ADENOCARCINOMA PANCREAS [None]
  - LIP AND/OR ORAL CAVITY CANCER [None]
  - LYMPHADENITIS VIRAL [None]
  - METASTASES TO LYMPH NODES [None]
